FAERS Safety Report 11632228 (Version 1)
Quarter: 2015Q4

REPORT INFORMATION
  Report Type: Spontaneous
  Country: US (occurrence: US)
  Receive Date: 20151015
  Receipt Date: 20151015
  Transmission Date: 20160304
  Serious: No
  Sender: FDA-Public Use
  Company Number: US-MYLANLABS-2015M1026960

PATIENT
  Sex: Female
  Weight: 110 kg

DRUGS (1)
  1. ESTRADIOL TRANSDERMAL SYSTEM [Suspect]
     Active Substance: ESTRADIOL
     Indication: HORMONE REPLACEMENT THERAPY
     Dosage: 0.2 MG, QD (APPLYING 2 PATCHES ONCE WEEKLY)
     Route: 062
     Dates: start: 201505

REACTIONS (3)
  - Application site pruritus [Recovering/Resolving]
  - Application site reaction [Recovering/Resolving]
  - Application site erythema [Recovering/Resolving]

NARRATIVE: CASE EVENT DATE: 20150802
